FAERS Safety Report 4550018-3 (Version None)
Quarter: 2005Q1

REPORT INFORMATION
  Report Type: 
  Country: None (occurrence: None)
  Receive Date: 20050111
  Receipt Date: 20050111
  Transmission Date: 20050727
  Serious: Yes (Other)
  Sender: FDA-Public Use
  Company Number: None

PATIENT
  Sex: Female

DRUGS (2)
  1. GABAPENTIN (GENERIC) 400 QID [Suspect]
     Indication: DIABETIC NEUROPATHY
     Dosage: 400 MG 4 X DAILY ; ORAL
     Route: 048
     Dates: start: 20041105, end: 20041223
  2. GABAPENTIN (GENERIC) 400 QID [Suspect]
     Indication: RESTLESS LEGS SYNDROME
     Dosage: 400 MG 4 X DAILY ; ORAL
     Route: 048
     Dates: start: 20041105, end: 20041223

REACTIONS (1)
  - PAIN IN EXTREMITY [None]
